FAERS Safety Report 16836311 (Version 2)
Quarter: 2019Q3

REPORT INFORMATION
  Report Type: Spontaneous
  Country: KR (occurrence: KR)
  Receive Date: 20190921
  Receipt Date: 20190923
  Transmission Date: 20191005
  Serious: Yes (Other)
  Sender: FDA-Public Use
  Company Number: PHHY2019KR218631

PATIENT

DRUGS (3)
  1. CICLOSPORIN [Suspect]
     Active Substance: CYCLOSPORINE
     Indication: LIVER TRANSPLANT
     Route: 065
  2. TACROLIMUS. [Suspect]
     Active Substance: TACROLIMUS
     Indication: LIVER TRANSPLANT
     Route: 065
  3. EVEROLIMUS. [Suspect]
     Active Substance: EVEROLIMUS
     Indication: LIVER TRANSPLANT
     Route: 065

REACTIONS (17)
  - Headache [Unknown]
  - Infection [Unknown]
  - Cholangitis [Unknown]
  - Pneumonia [Unknown]
  - Cystitis [Unknown]
  - Leukopenia [Unknown]
  - Sepsis [Unknown]
  - Diarrhoea [Unknown]
  - Tuberculosis [Unknown]
  - Mouth ulceration [Unknown]
  - Alopecia [Unknown]
  - Herpes simplex [Unknown]
  - Rash [Unknown]
  - Impaired healing [Unknown]
  - Steatohepatitis [Unknown]
  - Angioedema [Unknown]
  - Acne [Unknown]
